FAERS Safety Report 9802290 (Version 2)
Quarter: 2014Q1

REPORT INFORMATION
  Report Type: Report from Study
  Country: FR (occurrence: FR)
  Receive Date: 20140107
  Receipt Date: 20140107
  Transmission Date: 20141002
  Serious: Yes (Other)
  Sender: FDA-Public Use
  Company Number: FR-BRISTOL-MYERS SQUIBB COMPANY-17248360

PATIENT
  Age: 48 Year
  Sex: Male

DRUGS (1)
  1. IPILIMUMAB [Suspect]
     Indication: MALIGNANT MELANOMA
     Dosage: LAST DATE:14FEB11(678MG)
     Route: 042
     Dates: start: 20110126, end: 20110307

REACTIONS (1)
  - Sarcoidosis [Recovered/Resolved]
